FAERS Safety Report 5633581-0 (Version None)
Quarter: 2008Q1

REPORT INFORMATION
  Report Type: 
  Country: None (occurrence: None)
  Receive Date: 20080221
  Receipt Date: 20080212
  Transmission Date: 20080703
  Serious: Yes (Death)
  Sender: FDA-Public Use
  Company Number: US-TYCO HEALTHCARE/MALLINCKRODT-T200800170

PATIENT

DRUGS (1)
  1. METHADOSE [Suspect]
     Dates: end: 20071201

REACTIONS (2)
  - ACCIDENTAL OVERDOSE [None]
  - PNEUMONIA [None]
